FAERS Safety Report 6370725-X (Version None)
Quarter: 2009Q3

REPORT INFORMATION
  Report Type: 
  Country: None (occurrence: None)
  Receive Date: 20090923
  Receipt Date: 20070523
  Transmission Date: 20100115
  Serious: No
  Sender: FDA-Public Use
  Company Number: US-ASTRAZENECA-2006UW25024

PATIENT
  Age: 39 Year
  Sex: Male
  Weight: 88 kg

DRUGS (14)
  1. SEROQUEL [Suspect]
     Indication: SCHIZOPHRENIA
     Route: 048
     Dates: start: 19980101, end: 20020101
  2. SEROQUEL [Suspect]
     Indication: DEPRESSION
     Route: 048
     Dates: start: 19980101, end: 20020101
  3. SEROQUEL [Suspect]
     Indication: HALLUCINATION, AUDITORY
     Route: 048
     Dates: start: 19980101, end: 20020101
  4. SEROQUEL [Suspect]
     Dosage: 100-700 MG
     Route: 048
     Dates: start: 20011213
  5. SEROQUEL [Suspect]
     Dosage: 100-700 MG
     Route: 048
     Dates: start: 20011213
  6. SEROQUEL [Suspect]
     Dosage: 100-700 MG
     Route: 048
     Dates: start: 20011213
  7. ZYPREXA [Suspect]
     Dates: start: 19990101, end: 20020101
  8. ZYPREXA [Suspect]
     Dosage: 10 MG EVERY EVENING
     Dates: start: 20011213
  9. PROZAC [Concomitant]
     Dates: start: 20011128
  10. TRAZODONE [Concomitant]
     Dosage: 100 MG EVERY EVENING
     Dates: start: 20020102
  11. SERTRALINE HCL [Concomitant]
     Dosage: 50-100 MG
     Dates: start: 20020214
  12. ATORVASTATIN [Concomitant]
     Dates: start: 20020516
  13. METFORMIN HCL [Concomitant]
     Dates: start: 20020630
  14. ENALAPRIL MALEATE [Concomitant]
     Dates: start: 20040324

REACTIONS (4)
  - DIABETES MELLITUS [None]
  - DRUG INEFFECTIVE [None]
  - INSULIN-REQUIRING TYPE 2 DIABETES MELLITUS [None]
  - TYPE 1 DIABETES MELLITUS [None]
